FAERS Safety Report 7402481-8 (Version None)
Quarter: 2011Q2

REPORT INFORMATION
  Report Type: 
  Country: None (occurrence: None)
  Receive Date: 20110408
  Receipt Date: 20110328
  Transmission Date: 20111010
  Serious: Yes (Hospitalization, Other)
  Sender: FDA-Public Use
  Company Number: PHHO2011NL00562

PATIENT
  Age: 60 Year
  Sex: Male
  Weight: 101 kg

DRUGS (20)
  1. PRAVASTATIN [Concomitant]
  2. INSULIN NOVO [Concomitant]
     Dosage: UNK
  3. NOVORAPID [Concomitant]
     Dosage: UNK
     Dates: start: 20090116, end: 20101001
  4. CELLCEPT [Suspect]
     Indication: RENAL TRANSPLANT
     Dosage: 750 MG, BID
     Route: 048
     Dates: start: 20100114
  5. PREDNISOLONE [Suspect]
     Dosage: 15 MG, QD
     Route: 048
     Dates: start: 20101020, end: 20101028
  6. PREDNISOLONE [Suspect]
     Dosage: 5 MG, QD
     Route: 048
     Dates: start: 20101020, end: 20101122
  7. METOPROLOL [Concomitant]
  8. PREDNISOLONE [Suspect]
     Indication: RENAL TRANSPLANT
     Dosage: 5 MG, QD
     Route: 048
     Dates: start: 20100114, end: 20101019
  9. PREDNISOLONE [Suspect]
     Dosage: 5 MG EVERY OTHER DAY
     Route: 048
     Dates: start: 20101123, end: 20101126
  10. INSULIN NOVO [Concomitant]
     Dosage: UNK
  11. NEORAL [Suspect]
     Indication: RENAL TRANSPLANT
     Dosage: 75 MG, BID
     Route: 048
     Dates: start: 20100114, end: 20100316
  12. PREDNISOLONE [Suspect]
     Dosage: 2.5 MG,EVERY OTHER DAY
     Route: 048
     Dates: start: 20101124, end: 20101126
  13. TAMSULOSIN HCL [Concomitant]
  14. NEORAL [Suspect]
     Dosage: 100 MG, BID
     Route: 048
     Dates: start: 20100317
  15. PREDNISOLONE [Suspect]
     Dosage: 2.5 MG
     Route: 048
     Dates: start: 20101203
  16. NOVORAPID [Concomitant]
     Dosage: UNK
     Dates: start: 20101020
  17. LANTUS [Concomitant]
     Dosage: UNK
     Dates: start: 20090116
  18. ENALAPRIL MALEATE [Concomitant]
  19. PREDNISOLONE [Suspect]
     Dosage: 15 MG, QD
     Dates: start: 20101128, end: 20101202
  20. PANTOPRAZOLE [Concomitant]

REACTIONS (9)
  - MEDICAL DEVICE COMPLICATION [None]
  - UROSEPSIS [None]
  - OSTEOMYELITIS [None]
  - RESPIRATORY FAILURE [None]
  - ESCHERICHIA INFECTION [None]
  - SKIN ULCER [None]
  - PYREXIA [None]
  - ENTEROBACTER INFECTION [None]
  - CELLULITIS [None]
